FAERS Safety Report 9585700 (Version 2)
Quarter: 2013Q4

REPORT INFORMATION
  Report Type: Spontaneous
  Country: FR (occurrence: FR)
  Receive Date: 20131003
  Receipt Date: 20131125
  Transmission Date: 20140711
  Serious: Yes (Other)
  Sender: FDA-Public Use
  Company Number: FR-AMGEN-FRASP2013069305

PATIENT
  Age: 66 Year
  Sex: Female
  Weight: 59 kg

DRUGS (4)
  1. ENBREL [Suspect]
     Indication: RHEUMATOID ARTHRITIS
     Dosage: 50 MG, WEEKLY
     Route: 058
     Dates: start: 20110607
  2. DEROXAT [Concomitant]
     Indication: DEPRESSION
     Dosage: 20 MG, 1X/DAY
     Route: 048
     Dates: start: 201305
  3. NORDAZ [Concomitant]
     Indication: DEPRESSION
     Dosage: 7.5 MG, 1X/DAY
     Route: 048
     Dates: start: 201305
  4. INEXIUM                            /01479302/ [Concomitant]
     Dosage: 40 MG, 1X/DAY
     Dates: start: 2012

REACTIONS (3)
  - Chorioretinitis [Recovering/Resolving]
  - Intermediate uveitis [Recovering/Resolving]
  - Pyelonephritis [Unknown]
